FAERS Safety Report 5656543-6 (Version None)
Quarter: 2008Q1

REPORT INFORMATION
  Report Type: 
  Country: None (occurrence: None)
  Receive Date: 20080310
  Receipt Date: 20080206
  Transmission Date: 20080703
  Serious: No
  Sender: FDA-Public Use
  Company Number: US-BAYER-200813247NA

PATIENT
  Age: 35 Year
  Sex: Male
  Weight: 61 kg

DRUGS (2)
  1. MIRENA [Suspect]
     Indication: CONTRACEPTION
     Dates: start: 20060101
  2. MULTI-VITAMIN [Concomitant]

REACTIONS (2)
  - GENITAL PAIN [None]
  - UTERINE CERVICAL LACERATION [None]
